FAERS Safety Report 11990646 (Version 4)
Quarter: 2016Q2

REPORT INFORMATION
  Report Type: Spontaneous
  Country: US (occurrence: US)
  Receive Date: 20160202
  Receipt Date: 20160521
  Transmission Date: 20160815
  Serious: No
  Sender: FDA-Public Use
  Company Number: US-009507513-1601USA011637

PATIENT
  Age: 55 Year
  Sex: Female
  Weight: 66.67 kg

DRUGS (5)
  1. EMEND [Suspect]
     Active Substance: APREPITANT
     Indication: CHEMOTHERAPY
     Dosage: 150 MG, ONCE
     Route: 042
     Dates: start: 20160121
  2. DOXORUBICIN [Concomitant]
     Active Substance: DOXORUBICIN
     Indication: BREAST CANCER
     Dosage: TOTAL DAILY DOSIS: 100 MG
     Route: 042
     Dates: start: 20160121, end: 20160122
  3. DEXRAZOXANE. [Concomitant]
     Active Substance: DEXRAZOXANE
     Indication: EXTRAVASATION
     Dosage: TOTAL DAILY DOSIS: 1200 MG
     Route: 042
     Dates: start: 20160121, end: 20160121
  4. CYCLOPHOSPHAMIDE. [Concomitant]
     Active Substance: CYCLOPHOSPHAMIDE
     Indication: BREAST CANCER
     Dosage: TOTAL DAILY DOSIS: 1000 MG
     Route: 042
     Dates: start: 20160121, end: 20160122
  5. DEXAMETHASONE. [Concomitant]
     Active Substance: DEXAMETHASONE
     Indication: ANTIEMETIC SUPPORTIVE CARE
     Dosage: TOTAL DAILY DOSIS: 12 MG
     Route: 042
     Dates: start: 20160121, end: 20160121

REACTIONS (5)
  - Infusion site erythema [Recovered/Resolved]
  - Injection site discolouration [Recovered/Resolved]
  - Infusion site swelling [Recovered/Resolved]
  - Injection site induration [Recovered/Resolved]
  - Urticaria [Recovered/Resolved]

NARRATIVE: CASE EVENT DATE: 20160121
